FAERS Safety Report 13383606 (Version 1)
Quarter: 2017Q1

REPORT INFORMATION
  Report Type: Spontaneous
  Country: CN (occurrence: CN)
  Receive Date: 20170329
  Receipt Date: 20170329
  Transmission Date: 20170429
  Serious: Yes (Other)
  Sender: FDA-Public Use
  Company Number: CN-IMPAX LABORATORIES, INC-2017-IPXL-00828

PATIENT
  Age: 5 Year

DRUGS (2)
  1. ALBENZA [Suspect]
     Active Substance: ALBENDAZOLE
     Dosage: 2 TABLETS, UNK
     Route: 048
     Dates: start: 2017
  2. ALBENZA [Suspect]
     Active Substance: ALBENDAZOLE
     Indication: PARASITIC INFECTION PROPHYLAXIS
     Dosage: 2 TABLETS, UNK
     Route: 048
     Dates: start: 2016

REACTIONS (2)
  - Oral helminthic infection [Unknown]
  - Medication error [Unknown]

NARRATIVE: CASE EVENT DATE: 2016
